FAERS Safety Report 9468537 (Version 2)
Quarter: 2013Q4

REPORT INFORMATION
  Report Type: Spontaneous
  Country: US (occurrence: US)
  Receive Date: 20130821
  Receipt Date: 20131009
  Transmission Date: 20140711
  Serious: No
  Sender: FDA-Public Use
  Company Number: US-BAYER-2013-098467

PATIENT
  Age: 80 Year
  Sex: Female

DRUGS (1)
  1. FINACEA [Suspect]
     Indication: RASH
     Dosage: TWICE A DAY
     Dates: start: 2013

REACTIONS (3)
  - Acne [None]
  - Drug ineffective [None]
  - Rash [None]
